FAERS Safety Report 7584345-2 (Version None)
Quarter: 2011Q2

REPORT INFORMATION
  Report Type: 
  Country: None (occurrence: None)
  Receive Date: 20110531
  Receipt Date: 20110317
  Transmission Date: 20111010
  Serious: Yes (Hospitalization)
  Sender: FDA-Public Use
  Company Number: WAES 1103USA02510

PATIENT
  Age: 72 Year
  Sex: Female

DRUGS (2)
  1. BENICAR [Concomitant]
  2. JANUMET [Suspect]
     Indication: DIABETES MELLITUS
     Dosage: 500MG/50 MG/DAILY/PO
     Route: 048
     Dates: start: 20101201, end: 20101201

REACTIONS (2)
  - RASH GENERALISED [None]
  - INAPPROPRIATE SCHEDULE OF DRUG ADMINISTRATION [None]
